FAERS Safety Report 21308847 (Version 2)
Quarter: 2022Q3

REPORT INFORMATION
  Report Type: Spontaneous
  Country: CN (occurrence: CN)
  Receive Date: 20220908
  Receipt Date: 20220926
  Transmission Date: 20221027
  Serious: Yes (Hospitalization)
  Sender: FDA-Public Use
  Company Number: CN-AMGEN-CHNSP2022152545

PATIENT
  Age: 64 Year
  Sex: Female

DRUGS (4)
  1. KYPROLIS [Suspect]
     Active Substance: CARFILZOMIB
     Indication: Plasma cell myeloma recurrent
     Dosage: 60 MILLIGRAM (INFUSION TIME 30 MINUTES)
     Route: 065
     Dates: start: 20220827
  2. KYPROLIS [Suspect]
     Active Substance: CARFILZOMIB
     Dosage: 60 MILLIGRAM (INFUSION TIME 30 MINUTES)
     Route: 065
     Dates: start: 202209
  3. DARZALEX [Suspect]
     Active Substance: DARATUMUMAB
     Indication: Plasma cell myeloma recurrent
     Dosage: 500 MILLIGRAM
     Route: 065
     Dates: start: 20220826
  4. DEXAMETHASONE [Suspect]
     Active Substance: DEXAMETHASONE
     Indication: Plasma cell myeloma recurrent
     Dosage: 20 MILLIGRAM
     Route: 065

REACTIONS (1)
  - Amnesia [Recovered/Resolved]

NARRATIVE: CASE EVENT DATE: 20220901
